FAERS Safety Report 4315685-8 (Version None)
Quarter: 2004Q1

REPORT INFORMATION
  Report Type: 
  Country: None (occurrence: None)
  Receive Date: 20040309
  Receipt Date: 20040219
  Transmission Date: 20041129
  Serious: Yes (Life-Threatening)
  Sender: FDA-Public Use
  Company Number: USA040259881

PATIENT
  Age: 55 Year
  Sex: Female

DRUGS (4)
  1. PROZAC [Suspect]
     Indication: DEPRESSION
     Dosage: 80 MG/DAY
     Dates: start: 19940101
  2. PROZAC [Suspect]
     Indication: OBSESSIVE-COMPULSIVE DISORDER
     Dosage: 80 MG/DAY
     Dates: start: 19940101
  3. ABILIFY [Concomitant]
  4. SEROQUEL [Concomitant]

REACTIONS (3)
  - AKATHISIA [None]
  - DRUG EFFECT DECREASED [None]
  - MENTAL DISORDER [None]
